FAERS Safety Report 7297312-3 (Version None)
Quarter: 2011Q1

REPORT INFORMATION
  Report Type: 
  Country: None (occurrence: None)
  Receive Date: 20110216
  Receipt Date: 20110210
  Transmission Date: 20110831
  Serious: Yes (Other)
  Sender: FDA-Public Use
  Company Number: DE-PFIZER INC-2011032262

PATIENT
  Age: 24 Year
  Sex: Male

DRUGS (2)
  1. LYRICA [Suspect]
     Indication: DRUG DEPENDENCE
     Dosage: 300 MG, UNK
  2. DIAZEPAM [Suspect]
     Indication: DRUG DEPENDENCE
     Dosage: 10 ML, UNK

REACTIONS (2)
  - DRUG ABUSE [None]
  - DRUG DEPENDENCE [None]
